FAERS Safety Report 24912346 (Version 1)
Quarter: 2025Q1

REPORT INFORMATION
  Report Type: Spontaneous
  Country: US (occurrence: US)
  Receive Date: 20250131
  Receipt Date: 20250131
  Transmission Date: 20250408
  Serious: Yes (Other)
  Sender: TEVA
  Company Number: US-TEVA-VS-3290650

PATIENT
  Sex: Female

DRUGS (1)
  1. QVAR [Suspect]
     Active Substance: BECLOMETHASONE DIPROPIONATE
     Indication: Product used for unknown indication
     Route: 055
     Dates: end: 2024

REACTIONS (4)
  - Cerebrovascular accident [Unknown]
  - Intraocular pressure increased [Unknown]
  - Insurance issue [Unknown]
  - Eye haemorrhage [Unknown]
